FAERS Safety Report 9420171 (Version 1)
Quarter: 2013Q3

REPORT INFORMATION
  Report Type: Spontaneous
  Country: GB (occurrence: GB)
  Receive Date: 20130725
  Receipt Date: 20130725
  Transmission Date: 20140515
  Serious: Yes (Other)
  Sender: FDA-Public Use
  Company Number: GB-TEVA-419607ISR

PATIENT
  Age: 55 Year
  Sex: Female
  Weight: 60.32 kg

DRUGS (3)
  1. SERTRALINE HYDROCHLORIDE [Suspect]
     Indication: ANXIETY
     Route: 048
  2. GRAPEFRUIT [Suspect]
  3. SERTRALINE [Concomitant]

REACTIONS (2)
  - Migraine with aura [Recovered/Resolved]
  - Food interaction [Unknown]
